FAERS Safety Report 23402669 (Version 1)
Quarter: 2024Q1

REPORT INFORMATION
  Report Type: Spontaneous
  Country: JP (occurrence: JP)
  Receive Date: 20240115
  Receipt Date: 20240115
  Transmission Date: 20240410
  Serious: Yes (Hospitalization, Other)
  Sender: FDA-Public Use
  Company Number: JP-MSD-2401JPN000808J

PATIENT
  Age: 70 Year
  Sex: Male
  Weight: 61 kg

DRUGS (19)
  1. KEYTRUDA [Suspect]
     Active Substance: PEMBROLIZUMAB
     Indication: Oesophageal squamous cell carcinoma
     Dosage: 200 MILLIGRAM
     Route: 041
     Dates: start: 20220217, end: 20221201
  2. KEYTRUDA [Suspect]
     Active Substance: PEMBROLIZUMAB
     Dosage: 200 MILLIGRAM
     Route: 041
     Dates: start: 202311
  3. CISPLATIN [Suspect]
     Active Substance: CISPLATIN
     Indication: Oesophageal squamous cell carcinoma
     Dosage: UNK
     Route: 065
     Dates: start: 20220217, end: 2022
  4. FLUOROURACIL [Concomitant]
     Active Substance: FLUOROURACIL
     Indication: Oesophageal squamous cell carcinoma
     Dosage: UNK
     Route: 065
     Dates: start: 20220217
  5. OXYCODONE HYDROCHLORIDE [Concomitant]
     Active Substance: OXYCODONE HYDROCHLORIDE
     Dosage: UNK
     Route: 065
  6. LINZESS [Concomitant]
     Active Substance: LINACLOTIDE
     Dosage: UNK
     Route: 065
  7. ELOBIXIBAT [Concomitant]
     Active Substance: ELOBIXIBAT
     Dosage: UNK
     Route: 065
  8. AMLODIPINE BESYLATE\AZILSARTAN [Concomitant]
     Active Substance: AMLODIPINE BESYLATE\AZILSARTAN
     Dosage: UNK
     Route: 065
  9. CINAL [ASCORBIC ACID;CALCIUM PANTOTHENATE] [Concomitant]
     Dosage: UNK
     Route: 065
  10. ACETAMINOPHEN\TRAMADOL HYDROCHLORIDE [Concomitant]
     Active Substance: ACETAMINOPHEN\TRAMADOL HYDROCHLORIDE
     Dosage: UNK
     Route: 065
  11. VONOPRAZAN FUMARATE [Concomitant]
     Active Substance: VONOPRAZAN FUMARATE
     Dosage: UNK
     Route: 065
  12. HYDROMORPHONE HYDROCHLORIDE [Concomitant]
     Active Substance: HYDROMORPHONE HYDROCHLORIDE
     Dosage: UNK
     Route: 065
  13. ZOLPIDEM TARTRATE [Concomitant]
     Active Substance: ZOLPIDEM TARTRATE
     Dosage: UNK
     Route: 065
  14. MIROGABALIN BESYLATE [Concomitant]
     Active Substance: MIROGABALIN BESYLATE
     Dosage: UNK
     Route: 065
  15. CELECOXIB [Concomitant]
     Active Substance: CELECOXIB
     Dosage: UNK
     Route: 065
  16. FEBUXOSTAT [Concomitant]
     Active Substance: FEBUXOSTAT
     Dosage: UNK
     Route: 065
  17. RIVOTRIL [Concomitant]
     Active Substance: CLONAZEPAM
     Dosage: UNK
     Route: 065
  18. LOKELMA [Concomitant]
     Active Substance: SODIUM ZIRCONIUM CYCLOSILICATE
     Dosage: UNK
     Route: 065
  19. MAGNESIUM OXIDE [Concomitant]
     Active Substance: MAGNESIUM OXIDE
     Dosage: UNK
     Route: 065

REACTIONS (3)
  - Adrenal disorder [Recovering/Resolving]
  - Hypothyroidism [Recovering/Resolving]
  - Thyroiditis [Recovering/Resolving]

NARRATIVE: CASE EVENT DATE: 20221012
